FAERS Safety Report 9217693 (Version 3)
Quarter: 2013Q2

REPORT INFORMATION
  Report Type: Spontaneous
  Country: US (occurrence: US)
  Receive Date: 20130408
  Receipt Date: 20130516
  Transmission Date: 20140414
  Serious: No
  Sender: FDA-Public Use
  Company Number: US-PFIZER INC-2013108723

PATIENT
  Sex: Female

DRUGS (3)
  1. ACCUPRIL [Suspect]
     Indication: HYPERTENSION
     Dosage: 40 MG, 2X/DAY
     Route: 048
     Dates: start: 20061105
  2. ACCURETIC [Suspect]
     Indication: HYPERTENSION
     Dosage: [QUINAPRIL 20 MG/ HYDROCHLOROTHIAZIDE 25 MG], 1X/DAY
     Route: 048
     Dates: start: 2008
  3. LIPITOR [Suspect]
     Indication: BLOOD CHOLESTEROL INCREASED
     Dosage: 20 MG, 1X/DAY
     Route: 048
     Dates: start: 2008

REACTIONS (1)
  - Fall [Unknown]
